FAERS Safety Report 5885306-1 (Version None)
Quarter: 2008Q3

REPORT INFORMATION
  Report Type: 
  Country: None (occurrence: None)
  Receive Date: 20080915
  Receipt Date: 20080915
  Transmission Date: 20090109
  Serious: Yes (Death)
  Sender: FDA-Public Use
  Company Number: None

PATIENT
  Age: 70 Year
  Sex: Male
  Weight: 73.9363 kg

DRUGS (1)
  1. AMBIEN [Suspect]
     Indication: INSOMNIA
     Dosage: 10 MG 1X AT BED TIME PO
     Route: 048
     Dates: start: 20080401, end: 20080804

REACTIONS (5)
  - COMPLETED SUICIDE [None]
  - CONFUSIONAL STATE [None]
  - DELUSION [None]
  - HALLUCINATION, AUDITORY [None]
  - SOMNAMBULISM [None]
